FAERS Safety Report 20778239 (Version 1)
Quarter: 2022Q2

REPORT INFORMATION
  Report Type: Spontaneous
  Country: JP (occurrence: None)
  Receive Date: 20220503
  Receipt Date: 20220503
  Transmission Date: 20220721
  Serious: Yes (Other)
  Sender: FDA-Public Use
  Company Number: 2022A163845

PATIENT

DRUGS (1)
  1. FASENRA [Suspect]
     Active Substance: BENRALIZUMAB
     Indication: Asthma
     Dosage: DOSE UNKNOWN
     Route: 058

REACTIONS (8)
  - Polyneuropathy [Unknown]
  - Pain in extremity [Unknown]
  - Hypoaesthesia [Unknown]
  - Dysstasia [Unknown]
  - Ear disorder [Unknown]
  - Oedema peripheral [Unknown]
  - Inflammation [Unknown]
  - Pruritus [Unknown]
